FAERS Safety Report 10715990 (Version 1)
Quarter: 2015Q1

REPORT INFORMATION
  Report Type: Spontaneous
  Country: US (occurrence: None)
  Receive Date: 20150109
  Receipt Date: 20150109
  Transmission Date: 20150721
  Serious: Yes (Hospitalization, Other)
  Sender: FDA-Public Use
  Company Number: 2014PROUSA03678

PATIENT
  Age: 75 Year
  Sex: Male
  Weight: 104.3 kg

DRUGS (15)
  1. CO Q 10 (UBIDECARENONE) [Concomitant]
  2. KLOR-CON(POTASSIUM CHLORIDE) [Concomitant]
  3. PRILOSEC [Concomitant]
     Active Substance: OMEPRAZOLE MAGNESIUM
  4. XEGEVA(DENOSUMAB) [Concomitant]
  5. PROVENGE [Suspect]
     Active Substance: SIPULEUCEL-T
     Indication: PROSTATE CANCER METASTATIC
     Route: 042
     Dates: start: 20140410, end: 20140410
  6. TAMSULOSIN HCL (TAMSULOSIN HYDROCHLORIDE) [Concomitant]
  7. AMLODIPINE BESILATE(AMLODIPINE BESILATE) [Concomitant]
  8. FISH OIL(COD-LIVER OIL) [Concomitant]
  9. ELIGARD(LEUPRORELIN ACETATE) [Concomitant]
  10. DICLOFENAC SODIUM ER (DICLOFENAC SODIUM) [Concomitant]
  11. VOLATAREN(DICLOFENAC SODIUM) [Concomitant]
  12. DEGARELIX(DEGARELIZ) [Concomitant]
  13. LUMIGAN(BIMATOPROST) [Concomitant]
  14. BUMEX(BUMETANIDE) [Concomitant]
  15. K-DUR(POTASSIUM CHLORIDE) [Concomitant]

REACTIONS (1)
  - Ischaemic stroke [None]

NARRATIVE: CASE EVENT DATE: 20140424
